FAERS Safety Report 26060507 (Version 1)
Quarter: 2025Q4

REPORT INFORMATION
  Report Type: Spontaneous
  Country: US (occurrence: None)
  Receive Date: 20251118
  Receipt Date: 20251118
  Transmission Date: 20260118
  Serious: No
  Sender: FDA-CTU
  Company Number: None

PATIENT
  Age: 52 Year
  Sex: Female
  Weight: 61.23 kg

DRUGS (1)
  1. CORTICOTROPIN [Suspect]
     Active Substance: CORTICOTROPIN
     Indication: Multiple sclerosis
     Dosage: FREQUENCY : DAILY;?
     Route: 058

REACTIONS (2)
  - Nonspecific reaction [None]
  - Therapeutic response changed [None]

NARRATIVE: CASE EVENT DATE: 20251118
